FAERS Safety Report 4802040-7 (Version None)
Quarter: 2005Q4

REPORT INFORMATION
  Report Type: 
  Country: None (occurrence: None)
  Receive Date: 20051011
  Receipt Date: 20050926
  Transmission Date: 20060501
  Serious: Yes (Other)
  Sender: FDA-Public Use
  Company Number: 2005116922

PATIENT
  Sex: Female

DRUGS (5)
  1. DETROL LA [Suspect]
     Indication: HYPERTONIC BLADDER
     Dates: start: 20050101
  2. ALL OTHER THEAPEUTIC PRODUCTS (ALL OTHER THERAPEUTIC PRODUCTS) [Suspect]
     Indication: HYPERTONIC BLADDER
     Dates: start: 20050101, end: 20050101
  3. TROSPIUM CHLORIDE (TROSPIUM CHLORIDE) [Suspect]
     Indication: HYPERTONIC BLADDER
     Dates: start: 20050101, end: 20050816
  4. TYLENOL ARTHRITIS (PARACETAMOL) [Concomitant]
  5. THYROID TAB [Concomitant]

REACTIONS (1)
  - DRUG INEFFECTIVE [None]
